FAERS Safety Report 24096338 (Version 1)
Quarter: 2024Q3

REPORT INFORMATION
  Report Type: Spontaneous
  Country: US (occurrence: None)
  Receive Date: 20240715
  Receipt Date: 20240715
  Transmission Date: 20241017
  Serious: Yes (Hospitalization)
  Sender: Public
  Company Number: None

PATIENT
  Sex: Female

DRUGS (1)
  1. ZEJULA [Suspect]
     Active Substance: NIRAPARIB
     Indication: Fallopian tube cancer
     Dosage: FREQUENCY : DAILY;?
     Route: 048
     Dates: start: 202112, end: 20240222

REACTIONS (4)
  - Blood pressure increased [None]
  - Vertigo [None]
  - Muscular weakness [None]
  - Muscular weakness [None]
